FAERS Safety Report 9136165 (Version 1)
Quarter: 2013Q1

REPORT INFORMATION
  Report Type: Spontaneous
  Country: US (occurrence: US)
  Receive Date: 20130304
  Receipt Date: 20130304
  Transmission Date: 20140127
  Serious: No
  Sender: FDA-Public Use
  Company Number: US-ABBOTT-12P-163-0922628-00

PATIENT
  Sex: Male
  Weight: 102.15 kg

DRUGS (9)
  1. ANDROGEL 1% [Suspect]
     Indication: BLOOD TESTOSTERONE DECREASED
     Dosage: 6 PUMPS ONCE DAILY
     Route: 061
     Dates: start: 2009
  2. ANDROGEL 1% [Suspect]
     Indication: PITUITARY TUMOUR
     Route: 061
  3. ANDROGEL 1% [Suspect]
     Route: 061
     Dates: start: 201202
  4. ANDROGEL 1.62% [Suspect]
     Indication: BLOOD TESTOSTERONE DECREASED
     Dosage: 1.5 PUMP
     Route: 061
     Dates: end: 201202
  5. LIPITOR [Concomitant]
     Indication: PRODUCT USED FOR UNKNOWN INDICATION
  6. TOPAMAX [Concomitant]
     Indication: PRODUCT USED FOR UNKNOWN INDICATION
  7. WELLBUTRIN [Concomitant]
     Indication: PRODUCT USED FOR UNKNOWN INDICATION
     Route: 048
  8. LISINOPRIL [Concomitant]
     Indication: PRODUCT USED FOR UNKNOWN INDICATION
  9. TESTOPEL [Concomitant]
     Indication: BLOOD TESTOSTERONE DECREASED
     Dates: start: 2012

REACTIONS (4)
  - Blood testosterone abnormal [Not Recovered/Not Resolved]
  - Incorrect dose administered [Not Recovered/Not Resolved]
  - Product quality issue [Unknown]
  - Incorrect storage of drug [Unknown]
